FAERS Safety Report 14996521 (Version 2)
Quarter: 2019Q4

REPORT INFORMATION
  Report Type: Spontaneous
  Country: US (occurrence: US)
  Receive Date: 20180611
  Receipt Date: 20191030
  Transmission Date: 20200122
  Serious: No
  Sender: FDA-Public Use
  Company Number: US-BEH-2018091415

PATIENT
  Age: 30 Year
  Sex: Female
  Weight: 74.83 kg

DRUGS (7)
  1. HAEGARDA [Suspect]
     Active Substance: HUMAN C1-ESTERASE INHIBITOR
     Dosage: UNK
     Route: 058
     Dates: start: 201805
  2. FIRAZYR [Concomitant]
     Active Substance: ICATIBANT ACETATE
  3. LORATADINE. [Concomitant]
     Active Substance: LORATADINE
  4. HAEGARDA [Suspect]
     Active Substance: HUMAN C1-ESTERASE INHIBITOR
     Indication: HEREDITARY ANGIOEDEMA
     Dosage: 4000 IU, BIW
     Route: 058
     Dates: start: 20180424
  5. HAEGARDA [Suspect]
     Active Substance: HUMAN C1-ESTERASE INHIBITOR
     Indication: PROPHYLAXIS
     Dosage: 4000 IU, TOT
     Route: 058
  6. EPINEPHRINE. [Concomitant]
     Active Substance: EPINEPHRINE
  7. ZYRTEC [Concomitant]
     Active Substance: CETIRIZINE HYDROCHLORIDE

REACTIONS (5)
  - Infusion site induration [Recovered/Resolved]
  - Infusion site pain [Recovered/Resolved]
  - Infusion site warmth [Recovered/Resolved]
  - Infusion site irritation [Recovered/Resolved]
  - Infusion site pruritus [Recovered/Resolved]
